FAERS Safety Report 6772355-4 (Version None)
Quarter: 2010Q2

REPORT INFORMATION
  Report Type: 
  Country: None (occurrence: None)
  Receive Date: 20100616
  Receipt Date: 20091023
  Transmission Date: 20101027
  Serious: No
  Sender: FDA-Public Use
  Company Number: US-ASTRAZENECA-2009SE22414

PATIENT
  Age: 84 Year
  Sex: Female
  Weight: 56.7 kg

DRUGS (13)
  1. PULMICORT RESPULES [Suspect]
     Indication: CHRONIC OBSTRUCTIVE PULMONARY DISEASE
     Route: 055
     Dates: start: 20090922
  2. ALBUTEROL [Concomitant]
  3. BENECAR [Concomitant]
  4. COUMADIN [Concomitant]
  5. SODOLOL [Concomitant]
  6. LASIX [Concomitant]
  7. ASPIRIN [Concomitant]
  8. LIPITOR [Concomitant]
  9. VITAMIN C AND D [Concomitant]
  10. CALCIUM CARBONATE [Concomitant]
  11. FISH OIL [Concomitant]
  12. PRILOSEC [Concomitant]
  13. MUCINEX [Concomitant]

REACTIONS (2)
  - CHEST PAIN [None]
  - RASH ERYTHEMATOUS [None]
